FAERS Safety Report 5825930-5 (Version None)
Quarter: 2008Q3

REPORT INFORMATION
  Report Type: 
  Country: None (occurrence: None)
  Receive Date: 20080729
  Receipt Date: 20080721
  Transmission Date: 20090109
  Serious: Yes (Hospitalization)
  Sender: FDA-Public Use
  Company Number: PHHY2008DE14953

PATIENT
  Age: 75 Year
  Sex: Female

DRUGS (10)
  1. CORDINATE [Suspect]
     Indication: HYPERTENSION
     Dosage: 320 MG, QD
     Route: 048
     Dates: start: 20071212, end: 20080313
  2. RAMIPRIL [Concomitant]
     Dosage: 10 MG, UNK
  3. METOPROLOL TARTRATE [Concomitant]
     Dosage: 100 MG, UNK
  4. SIMVASTATIN [Concomitant]
     Dosage: 20 MG, UNK
  5. ASPIRIN [Concomitant]
     Dosage: 100 MG, UNK
  6. DICLOFENAC SODIUM [Concomitant]
     Dosage: 75 RET
  7. LEVOTHYROXINE SODIUM [Concomitant]
     Dosage: UNK
  8. CALCIUM D3 ^STADA^ [Concomitant]
     Dosage: UNK
  9. FELIS [Concomitant]
     Dosage: UNK
  10. PREDNISOLON [Concomitant]
     Dosage: 5 MG, UNK

REACTIONS (2)
  - HYPERTENSIVE CRISIS [None]
  - TACHYARRHYTHMIA [None]
